FAERS Safety Report 4466149-2 (Version None)
Quarter: 2004Q3

REPORT INFORMATION
  Report Type: 
  Country: None (occurrence: None)
  Receive Date: 20040930
  Receipt Date: 20040917
  Transmission Date: 20050211
  Serious: Yes (Death, Other)
  Sender: FDA-Public Use
  Company Number: 2004234149JP

PATIENT
  Age: 75 Year
  Sex: Male

DRUGS (4)
  1. CAMPTOSAR [Suspect]
     Indication: COLORECTAL CANCER
     Dosage: 140 MG, CYCLIC, IV DRIP
     Route: 041
     Dates: start: 20040821, end: 20040821
  2. CAMPTOSAR [Suspect]
     Indication: COLORECTAL CANCER
     Dosage: 140 MG, CYCLIC, IV DRIP
     Route: 041
     Dates: start: 20040828, end: 20040828
  3. FLUOROURACIL [Concomitant]
  4. ISOVORIN ^LEDERLE^/SCH [Concomitant]

REACTIONS (6)
  - BONE MARROW DEPRESSION [None]
  - INFUSION RELATED REACTION [None]
  - PANCYTOPENIA [None]
  - PULMONARY CONGESTION [None]
  - PYREXIA [None]
  - RASH [None]
